FAERS Safety Report 7346334-2 (Version None)
Quarter: 2011Q1

REPORT INFORMATION
  Report Type: 
  Country: None (occurrence: None)
  Receive Date: 20110311
  Receipt Date: 20110308
  Transmission Date: 20110831
  Serious: Yes (Other)
  Sender: FDA-Public Use
  Company Number: US-BAYER-2011-021182

PATIENT
  Sex: Female

DRUGS (3)
  1. YAZ [Suspect]
     Dosage: UNK
     Dates: start: 20070101, end: 20090301
  2. YASMIN [Suspect]
     Dosage: UNK
     Dates: start: 20090301, end: 20090801
  3. YASMIN [Suspect]
     Dosage: UNK
     Dates: start: 20060101, end: 20070101

REACTIONS (1)
  - GALLBLADDER INJURY [None]
